FAERS Safety Report 18961990 (Version 1)
Quarter: 2021Q1

REPORT INFORMATION
  Report Type: Spontaneous
  Country: None (occurrence: US)
  Receive Date: 20210302
  Receipt Date: 20210302
  Transmission Date: 20210420
  Serious: No
  Sender: FDA-Public Use
  Company Number: US-ARMSTRONG PHARMACEUTICALS, INC.-2107500

PATIENT
  Age: 73 Year
  Sex: Female
  Weight: 50 kg

DRUGS (1)
  1. PRIMATENE MIST [Suspect]
     Active Substance: EPINEPHRINE
     Indication: ASTHMA
     Route: 055

REACTIONS (8)
  - Oral mucosal eruption [Unknown]
  - Chest discomfort [Unknown]
  - Lip swelling [Unknown]
  - Tongue dry [Unknown]
  - Dry mouth [Unknown]
  - Glossitis [Unknown]
  - Oral mucosal erythema [Unknown]
  - Chapped lips [Unknown]
